FAERS Safety Report 5565628-4 (Version None)
Quarter: 2007Q4

REPORT INFORMATION
  Report Type: 
  Country: None (occurrence: None)
  Receive Date: 20071218
  Receipt Date: 20071213
  Transmission Date: 20080405
  Serious: Yes (Hospitalization)
  Sender: FDA-Public Use
  Company Number: DE-BOEHRINGER INGELHEIM PHARMACEUTICALS, INC.-2007-DE-07350GD

PATIENT
  Age: 65 Year
  Sex: Female

DRUGS (11)
  1. PRAMIPEXOLE DIHYDROCHLORIDE [Suspect]
     Indication: PARKINSONISM
     Dates: start: 20040101
  2. AMANTADINE HCL [Suspect]
     Indication: PARKINSONISM
     Dates: start: 20030101
  3. LEVODOPA [Suspect]
     Indication: PARKINSONISM
     Dates: start: 20030101
  4. ACETYLSALICYLIC ACID SRT [Concomitant]
  5. MIRTAZAPINE [Concomitant]
  6. ESOMEPRAZOLE [Concomitant]
  7. LEVOTHYROXINE SODIUM [Concomitant]
  8. AZATHIOPRINE [Concomitant]
     Indication: SYSTEMIC LUPUS ERYTHEMATOSUS
  9. PREDNISOLONE [Concomitant]
     Indication: SYSTEMIC LUPUS ERYTHEMATOSUS
  10. TROSPIUM [Concomitant]
  11. GABAPENTIN [Concomitant]

REACTIONS (5)
  - BALANCE DISORDER [None]
  - CONDITION AGGRAVATED [None]
  - DYSTONIA [None]
  - FALL [None]
  - TORTICOLLIS [None]
